FAERS Safety Report 17311955 (Version 2)
Quarter: 2020Q4

REPORT INFORMATION
  Report Type: Spontaneous
  Country: US (occurrence: US)
  Receive Date: 20200123
  Receipt Date: 20201113
  Transmission Date: 20210113
  Serious: No
  Sender: FDA-Public Use
  Company Number: US-NOVOPROD-700115

PATIENT
  Age: 77 Year
  Sex: Male

DRUGS (3)
  1. OZEMPIC [Suspect]
     Active Substance: SEMAGLUTIDE
     Indication: PRODUCT USED FOR UNKNOWN INDICATION
     Dosage: 1 MG
     Route: 058
     Dates: start: 20191106
  2. FIASP [Suspect]
     Active Substance: INSULIN ASPART
     Indication: PRODUCT USED FOR UNKNOWN INDICATION
     Dosage: 30 IU
     Route: 058
  3. TOUJEO [Suspect]
     Active Substance: INSULIN GLARGINE
     Indication: PRODUCT USED FOR UNKNOWN INDICATION
     Dosage: UNK
     Route: 058

REACTIONS (2)
  - Blood glucose decreased [Unknown]
  - Weight decreased [Unknown]
